FAERS Safety Report 5091736-0 (Version None)
Quarter: 2006Q3

REPORT INFORMATION
  Report Type: 
  Country: None (occurrence: None)
  Receive Date: 20060829
  Receipt Date: 20060328
  Transmission Date: 20061208
  Serious: Yes (Other)
  Sender: FDA-Public Use
  Company Number: US-BRISTOL-MYERS SQUIBB COMPANY-13328703

PATIENT
  Age: 49 Year
  Sex: Male
  Weight: 101 kg

DRUGS (8)
  1. ERBITUX [Suspect]
     Indication: NEOPLASM MALIGNANT
     Route: 042
     Dates: start: 20060314, end: 20060314
  2. ATIVAN [Concomitant]
  3. ALLOPURINOL [Concomitant]
  4. BENADRYL [Concomitant]
     Indication: PREMEDICATION
     Dates: start: 20060314
  5. NEXIUM [Concomitant]
  6. PROZAC [Concomitant]
  7. TYLENOL [Concomitant]
     Indication: PREMEDICATION
     Dates: start: 20060314
  8. RADIATION THERAPY [Concomitant]

REACTIONS (2)
  - BODY TEMPERATURE INCREASED [None]
  - CHILLS [None]
